FAERS Safety Report 4632283-7 (Version None)
Quarter: 2005Q2

REPORT INFORMATION
  Report Type: 
  Country: None (occurrence: None)
  Receive Date: 20050401
  Receipt Date: 20040812
  Transmission Date: 20051028
  Serious: Yes (Hospitalization)
  Sender: FDA-Public Use
  Company Number: 04P-163-0270826-00

PATIENT
  Sex: Male

DRUGS (2)
  1. DEPAKOTE [Suspect]
     Dosage: PER ORAL
     Route: 048
     Dates: end: 20040101
  2. LOPID [Suspect]
     Indication: LIPIDS INCREASED
     Dates: start: 20040101, end: 20040101

REACTIONS (1)
  - ANAEMIA [None]
